FAERS Safety Report 4482041-1 (Version None)
Quarter: 2004Q3

REPORT INFORMATION
  Report Type: 
  Country: None (occurrence: None)
  Receive Date: 20040921
  Receipt Date: 20030723
  Transmission Date: 20050211
  Serious: Yes (Hospitalization)
  Sender: FDA-Public Use
  Company Number: 163-20785-03070316

PATIENT
  Age: 64 Year
  Sex: Male

DRUGS (9)
  1. THALOMID [Suspect]
     Indication: MULTIPLE MYELOMA
     Dosage: 50 MG, DAILY, ORAL
     Route: 048
     Dates: start: 20030610, end: 20030618
  2. CELEXA [Concomitant]
  3. HYTRINE (TERAZOSIN HYDROCHLORIDE) [Concomitant]
  4. PROSCAR [Concomitant]
  5. LIPITOR [Concomitant]
  6. CELEBREX [Concomitant]
  7. ZOMETA [Concomitant]
  8. DECADRON [Concomitant]
  9. LEVAQUIN [Concomitant]

REACTIONS (11)
  - BLOOD PRESSURE ORTHOSTATIC DECREASED [None]
  - COUGH [None]
  - DEEP VEIN THROMBOSIS [None]
  - DIARRHOEA [None]
  - DIZZINESS [None]
  - DYSPNOEA [None]
  - INJURY [None]
  - OEDEMA PERIPHERAL [None]
  - PULMONARY EMBOLISM [None]
  - RESPIRATORY TRACT INFECTION [None]
  - SYNCOPE [None]
